FAERS Safety Report 7626896-8 (Version None)
Quarter: 2011Q3

REPORT INFORMATION
  Report Type: 
  Country: None (occurrence: None)
  Receive Date: 20110721
  Receipt Date: 20110714
  Transmission Date: 20111222
  Serious: Yes (Death, Other)
  Sender: FDA-Public Use
  Company Number: US-BAYER-200934780NA

PATIENT
  Age: 56 Year
  Sex: Male
  Weight: 90.703 kg

DRUGS (15)
  1. TRASYLOL [Suspect]
     Indication: MITRAL VALVE REPLACEMENT
  2. SPIRONOLACTONE [Concomitant]
     Dosage: UNK
     Dates: start: 20030401
  3. FRESH FROZEN PLASMA [Concomitant]
     Dosage: 8 U, UNK
  4. LASIX [Concomitant]
     Dosage: UNK
     Dates: start: 20030401
  5. ZOCOR [Concomitant]
  6. ISORDIL [Concomitant]
  7. MILRINONE [Concomitant]
     Dosage: UNK
     Route: 042
     Dates: start: 20030521
  8. PLAVIX [Concomitant]
  9. TRASYLOL [Suspect]
     Indication: CORONARY ARTERY BYPASS
     Dosage: 101 ML, UNK
     Dates: start: 20030521
  10. TRASYLOL [Suspect]
     Indication: TRICUSPID VALVE REPAIR
  11. METOPROLOL TARTRATE [Concomitant]
  12. ACETYLSALICYLIC ACID SRT [Concomitant]
  13. ENALAPRIL MALEATE [Concomitant]
     Dosage: UNK
     Dates: start: 20030401
  14. HEPARIN [Concomitant]
     Dosage: 40000 U, UNK
     Route: 042
     Dates: start: 20030521
  15. INSULIN [Concomitant]
     Dosage: 130 U, UNK
     Route: 042
     Dates: start: 20030521

REACTIONS (15)
  - EMOTIONAL DISTRESS [None]
  - DEPRESSION [None]
  - ANHEDONIA [None]
  - DEATH [None]
  - RENAL INJURY [None]
  - FEAR OF DEATH [None]
  - NERVOUSNESS [None]
  - ANXIETY [None]
  - RENAL FAILURE [None]
  - PAIN [None]
  - UNEVALUABLE EVENT [None]
  - DISABILITY [None]
  - MULTI-ORGAN FAILURE [None]
  - INJURY [None]
  - FEAR [None]
